FAERS Safety Report 4472270-5 (Version None)
Quarter: 2004Q4

REPORT INFORMATION
  Report Type: 
  Country: None (occurrence: None)
  Receive Date: 20041007
  Receipt Date: 20040928
  Transmission Date: 20050328
  Serious: Yes (Life-Threatening, Hospitalization, Other)
  Sender: FDA-Public Use
  Company Number: 200413260BCC

PATIENT
  Age: 46 Year
  Sex: Female
  Weight: 77.5651 kg

DRUGS (3)
  1. VANQUISH [Suspect]
     Indication: HEADACHE
     Dosage: ORAL
     Route: 048
     Dates: start: 19931008, end: 19931018
  2. PROZAC [Concomitant]
  3. LORAZEPAM [Concomitant]

REACTIONS (15)
  - ABDOMINAL DISTENSION [None]
  - ABDOMINAL RIGIDITY [None]
  - BLOOD PRESSURE DECREASED [None]
  - BOWEL SOUNDS ABNORMAL [None]
  - CHEST PAIN [None]
  - ENERGY INCREASED [None]
  - FALL [None]
  - GASTROINTESTINAL ULCER HAEMORRHAGE [None]
  - MASTECTOMY [None]
  - MENTAL IMPAIRMENT [None]
  - PROTHROMBIN TIME PROLONGED [None]
  - PULMONARY OEDEMA [None]
  - PULSE PRESSURE DECREASED [None]
  - RESPIRATORY RATE INCREASED [None]
  - TACHYCARDIA [None]
